FAERS Safety Report 6441686-X (Version None)
Quarter: 2009Q4

REPORT INFORMATION
  Report Type: 
  Country: None (occurrence: None)
  Receive Date: 20091113
  Receipt Date: 20091113
  Transmission Date: 20100525
  Serious: Yes (Hospitalization)
  Sender: FDA-Public Use
  Company Number: None

PATIENT
  Age: 61 Year
  Sex: Male
  Weight: 68.6 kg

DRUGS (1)
  1. CEFAZOLIN [Suspect]
     Indication: GRAFT INFECTION
     Dosage: 2 GM TID IV
     Route: 042
     Dates: start: 20091016, end: 20091027

REACTIONS (4)
  - ANGIOEDEMA [None]
  - CELLULITIS [None]
  - PRURITUS [None]
  - RASH [None]
